FAERS Safety Report 11524917 (Version 1)
Quarter: 2015Q3

REPORT INFORMATION
  Report Type: Spontaneous
  Country: US (occurrence: US)
  Receive Date: 20150918
  Receipt Date: 20150918
  Transmission Date: 20151125
  Serious: No
  Sender: FDA-Public Use
  Company Number: US-ROCHE-643199

PATIENT
  Age: 60 Year
  Sex: Male
  Weight: 64.4 kg

DRUGS (9)
  1. LORCET [Concomitant]
     Active Substance: ACETAMINOPHEN\HYDROCODONE BITARTRATE
     Indication: PAIN
     Dosage: DOSE: 5 (UNITS NOT PROVIDED), FREQUENCY: TAKEN DAILY
     Route: 065
  2. PEGASYS [Suspect]
     Active Substance: PEGINTERFERON ALFA-2A
     Indication: HEPATITIS C
     Route: 058
     Dates: start: 20090620, end: 20090926
  3. PEGASYS [Suspect]
     Active Substance: PEGINTERFERON ALFA-2A
     Route: 058
  4. PEGASYS [Suspect]
     Active Substance: PEGINTERFERON ALFA-2A
     Dosage: PRE-FILLED SYRINGE
     Route: 058
  5. COPEGUS [Suspect]
     Active Substance: RIBAVIRIN
     Indication: HEPATITIS C
     Dosage: DIVIDED DOSES
     Route: 065
     Dates: start: 20090620, end: 20091001
  6. RIBAVIRIN. [Suspect]
     Active Substance: RIBAVIRIN
     Indication: HEPATITIS C
     Route: 048
  7. COPEGUS [Suspect]
     Active Substance: RIBAVIRIN
     Dosage: IN DIVIDED DOSES
     Route: 065
  8. COPEGUS [Suspect]
     Active Substance: RIBAVIRIN
     Dosage: DOSE REDUCED
     Route: 065
  9. COPEGUS [Suspect]
     Active Substance: RIBAVIRIN
     Dosage: STOPPED FOR ONE WEEK
     Route: 065

REACTIONS (17)
  - Dry skin [Not Recovered/Not Resolved]
  - Infection [Unknown]
  - Rash erythematous [Not Recovered/Not Resolved]
  - Haemoglobin decreased [Unknown]
  - Ocular hyperaemia [Recovered/Resolved]
  - Eyelid irritation [Unknown]
  - Pain [Recovering/Resolving]
  - White blood cell count decreased [Unknown]
  - Eyelid oedema [Recovering/Resolving]
  - Eyelid disorder [Unknown]
  - Anaemia [Not Recovered/Not Resolved]
  - Blood glucose abnormal [Not Recovered/Not Resolved]
  - Dyspnoea [Not Recovered/Not Resolved]
  - Eyelids pruritus [Not Recovered/Not Resolved]
  - Eye swelling [Recovering/Resolving]
  - Skin warm [Not Recovered/Not Resolved]
  - Pyrexia [Recovering/Resolving]

NARRATIVE: CASE EVENT DATE: 20090110
